FAERS Safety Report 20332642 (Version 3)
Quarter: 2022Q2

REPORT INFORMATION
  Report Type: Report from Study
  Country: US (occurrence: US)
  Receive Date: 20220113
  Receipt Date: 20220411
  Transmission Date: 20220720
  Serious: No
  Sender: FDA-Public Use
  Company Number: US-NOVARTISTESTPH-NVSC2022US006895

PATIENT
  Age: 60 Year
  Sex: Male

DRUGS (1)
  1. KESIMPTA [Suspect]
     Active Substance: OFATUMUMAB
     Indication: Multiple sclerosis
     Dosage: 0.4 ML, QW (LOADING DOSE)
     Route: 058
     Dates: start: 20220111

REACTIONS (3)
  - Chills [Unknown]
  - Emotional disorder [Unknown]
  - Irritability [Unknown]

NARRATIVE: CASE EVENT DATE: 20220111
